FAERS Safety Report 25236876 (Version 2)
Quarter: 2025Q2

REPORT INFORMATION
  Report Type: Spontaneous
  Country: JP (occurrence: JP)
  Receive Date: 20250424
  Receipt Date: 20250512
  Transmission Date: 20250716
  Serious: Yes (Hospitalization, Other)
  Sender: GLAXOSMITHKLINE
  Company Number: JP-GSKJP-JP2025JPN047486AA

PATIENT

DRUGS (1)
  1. DAPRODUSTAT [Suspect]
     Active Substance: DAPRODUSTAT

REACTIONS (5)
  - Lymphoma [Unknown]
  - Mesenteric neoplasm [Unknown]
  - Gastrointestinal neoplasm [Unknown]
  - Illness [Unknown]
  - Feeding disorder [Unknown]
